FAERS Safety Report 8004456-7 (Version None)
Quarter: 2011Q4

REPORT INFORMATION
  Report Type: 
  Country: None (occurrence: None)
  Receive Date: 20111221
  Receipt Date: 20111221
  Transmission Date: 20120403
  Serious: Yes (Life-Threatening)
  Sender: FDA-Public Use
  Company Number: None

PATIENT
  Sex: Male
  Weight: 88.4514 kg

DRUGS (2)
  1. SIMPONI [Suspect]
     Dates: start: 20110101, end: 20110701
  2. REMICADE [Suspect]
     Indication: ANKYLOSING SPONDYLITIS
     Dates: start: 20100101, end: 20101201

REACTIONS (4)
  - INFUSION RELATED REACTION [None]
  - SKIN DISCOLOURATION [None]
  - HYPERSENSITIVITY [None]
  - PAIN [None]
